FAERS Safety Report 14421629 (Version 2)
Quarter: 2020Q2

REPORT INFORMATION
  Report Type: Spontaneous
  Country: US (occurrence: US)
  Receive Date: 20180122
  Receipt Date: 20200618
  Transmission Date: 20200713
  Serious: No
  Sender: FDA-Public Use
  Company Number: US-INTERCEPT-PMOCA2017000887

PATIENT

DRUGS (8)
  1. URSODIOL. [Concomitant]
     Active Substance: URSODIOL
  2. MELATONIN [Concomitant]
     Active Substance: MELATONIN
  3. OCALIVA [Suspect]
     Active Substance: OBETICHOLIC ACID
     Indication: PRIMARY BILIARY CHOLANGITIS
     Dosage: 10 MG, QD
     Route: 048
     Dates: start: 20170405, end: 202001
  4. TRAMADOL. [Concomitant]
     Active Substance: TRAMADOL
  5. OCALIVA [Suspect]
     Active Substance: OBETICHOLIC ACID
     Dosage: 10 MG, QD
     Route: 048
     Dates: start: 20200402
  6. DAYPRO [Concomitant]
     Active Substance: OXAPROZIN
  7. PLAQUENIL [Concomitant]
     Active Substance: HYDROXYCHLOROQUINE SULFATE
  8. VITAMIN D3 [Concomitant]
     Active Substance: CHOLECALCIFEROL

REACTIONS (4)
  - Pruritus [Unknown]
  - Product dose omission [Unknown]
  - Product prescribing error [Unknown]
  - Therapy interrupted [Recovered/Resolved]

NARRATIVE: CASE EVENT DATE: 2017
